FAERS Safety Report 25749297 (Version 1)
Quarter: 2025Q3

REPORT INFORMATION
  Report Type: Other
  Country: CA (occurrence: CA)
  Receive Date: 20250902
  Receipt Date: 20250902
  Transmission Date: 20251020
  Serious: Yes (Other)
  Sender: APOTEX
  Company Number: CA-PGRTD-001147646

PATIENT
  Age: 53 Year
  Sex: Female
  Weight: 71 kg

DRUGS (1)
  1. ROSUVASTATIN [Suspect]
     Active Substance: ROSUVASTATIN
     Indication: Product used for unknown indication
     Dosage: 5 MILLIGRAM, QD
     Route: 058

REACTIONS (2)
  - Rash [Recovered/Resolved]
  - Myalgia [Recovered/Resolved]
